FAERS Safety Report 9074015 (Version 1)
Quarter: 2013Q1

REPORT INFORMATION
  Report Type: Report from Study
  Country: US (occurrence: US)
  Receive Date: 20130129
  Receipt Date: 20130129
  Transmission Date: 20140127
  Serious: No
  Sender: FDA-Public Use
  Company Number: US-ABBOTT-12P-163-0918581-00

PATIENT
  Age: 75 None
  Sex: Female
  Weight: 68.1 kg

DRUGS (14)
  1. HUMIRA 40 MG/0.8 ML PEN [Suspect]
     Indication: PSORIATIC ARTHROPATHY
     Dates: start: 200806
  2. METHOTREXATE [Concomitant]
     Indication: PRODUCT USED FOR UNKNOWN INDICATION
  3. FOLIC ACID [Concomitant]
     Indication: PRODUCT USED FOR UNKNOWN INDICATION
  4. DIAZIDE [Concomitant]
     Indication: PRODUCT USED FOR UNKNOWN INDICATION
  5. DIOVAN [Concomitant]
     Indication: PRODUCT USED FOR UNKNOWN INDICATION
  6. VESICARE [Concomitant]
     Indication: MICTURITION URGENCY
  7. NASONEX [Concomitant]
     Indication: PRODUCT USED FOR UNKNOWN INDICATION
  8. ASTEPRO [Concomitant]
     Indication: PRODUCT USED FOR UNKNOWN INDICATION
  9. MULTIVITAMIN [Concomitant]
     Indication: PRODUCT USED FOR UNKNOWN INDICATION
  10. FISH OIL [Concomitant]
     Indication: PRODUCT USED FOR UNKNOWN INDICATION
  11. CALCIUM [Concomitant]
     Indication: PRODUCT USED FOR UNKNOWN INDICATION
  12. DIPROLENE [Concomitant]
     Indication: PRODUCT USED FOR UNKNOWN INDICATION
  13. DOVONEX [Concomitant]
     Indication: PRODUCT USED FOR UNKNOWN INDICATION
  14. ULTAVATE [Concomitant]
     Indication: PRODUCT USED FOR UNKNOWN INDICATION

REACTIONS (7)
  - Sinusitis [Recovered/Resolved]
  - Sneezing [Recovered/Resolved]
  - Laryngitis [Recovered/Resolved]
  - Upper-airway cough syndrome [Recovered/Resolved]
  - Cough [Recovered/Resolved]
  - Mucosal discolouration [Recovered/Resolved]
  - Blepharitis [Not Recovered/Not Resolved]
